FAERS Safety Report 7321811-9 (Version None)
Quarter: 2011Q1

REPORT INFORMATION
  Report Type: 
  Country: None (occurrence: None)
  Receive Date: 20110228
  Receipt Date: 20110218
  Transmission Date: 20110831
  Serious: Yes (Death)
  Sender: FDA-Public Use
  Company Number: US-WATSON-2011-01413

PATIENT
  Sex: Female
  Weight: 119 kg

DRUGS (4)
  1. OPIOIDS [Suspect]
     Indication: PRODUCT USED FOR UNKNOWN INDICATION
     Dosage: UNK
     Route: 065
  2. CNS DEPRESSORS [Suspect]
     Indication: PRODUCT USED FOR UNKNOWN INDICATION
     Dosage: UNK
     Route: 065
  3. FENTANYL-50 [Suspect]
     Indication: PRODUCT USED FOR UNKNOWN INDICATION
     Dosage: UNK
     Route: 062
     Dates: start: 20091215, end: 20091225
  4. RESPIRATORY DEPRESSORS [Suspect]
     Indication: PRODUCT USED FOR UNKNOWN INDICATION
     Dosage: UNK
     Route: 065

REACTIONS (5)
  - RESPIRATORY DEPRESSION [None]
  - HYPOTENSION [None]
  - DRUG INTERACTION [None]
  - OVERDOSE [None]
  - HEPATOMEGALY [None]
